FAERS Safety Report 22230727 (Version 1)
Quarter: 2023Q2

REPORT INFORMATION
  Report Type: Other
  Country: US (occurrence: None)
  Receive Date: 20230420
  Receipt Date: 20230420
  Transmission Date: 20230722
  Serious: Yes (Hospitalization)
  Sender: FDA-Public Use
  Company Number: US-ROCHE-3331757

PATIENT
  Age: 59 Year
  Sex: Male
  Weight: 90.800 kg

DRUGS (5)
  1. OCREVUS [Suspect]
     Active Substance: OCRELIZUMAB
     Indication: Primary progressive multiple sclerosis
     Dosage: SUBSEQUENT DOSES ON 22/10/2020, 07/12/2021, 20/12/2022. ?DATE OF MOST RECENT INFUSION 20/12/2022?DAT
     Route: 042
     Dates: start: 2020
  2. ATORVASTATIN [Concomitant]
     Active Substance: ATORVASTATIN
     Indication: Blood cholesterol increased
  3. GABAPENTIN [Concomitant]
     Active Substance: GABAPENTIN
     Dosage: 200MG IN MORNING, 200 MG IN AFTERNOON ;ONGOING: YES
  4. TRAMADOL [Concomitant]
     Active Substance: TRAMADOL
  5. LIPITOR [Concomitant]
     Active Substance: ATORVASTATIN CALCIUM

REACTIONS (6)
  - Thrombosis [Unknown]
  - Dyspnoea [Unknown]
  - Blood cholesterol increased [Unknown]
  - Pain in extremity [Unknown]
  - Contusion [Unknown]
  - COVID-19 pneumonia [Unknown]

NARRATIVE: CASE EVENT DATE: 20220628
